FAERS Safety Report 15985102 (Version 4)
Quarter: 2019Q1

REPORT INFORMATION
  Report Type: Spontaneous
  Country: FI (occurrence: FI)
  Receive Date: 20190220
  Receipt Date: 20190331
  Transmission Date: 20190418
  Serious: Yes (Hospitalization, Other)
  Sender: FDA-Public Use
  Company Number: PHHY2019FI035611

PATIENT
  Sex: Male

DRUGS (19)
  1. LEVOMEPROMAZINE [Suspect]
     Active Substance: LEVOMEPROMAZINE
     Indication: AGGRESSION
     Route: 065
  2. PIPERIDINE [Suspect]
     Active Substance: PIPERIDINE
     Indication: TARDIVE DYSKINESIA
     Route: 065
  3. CHLORPROTHIXENE [Suspect]
     Active Substance: CHLORPROTHIXENE
     Indication: SLEEP DISORDER
     Dosage: 25 MG, QD
     Route: 065
  4. QUETIAPINE. [Suspect]
     Active Substance: QUETIAPINE
     Indication: EPILEPSY
     Dosage: 150 MG, UNK
     Route: 065
  5. RISPERIDONE. [Suspect]
     Active Substance: RISPERIDONE
     Indication: EPILEPSY
     Dosage: 0.4 MG, QD
     Route: 065
  6. RISPERIDONE. [Suspect]
     Active Substance: RISPERIDONE
     Dosage: 0.25 MG, QD
     Route: 065
  7. VALPROATE SODIUM. [Suspect]
     Active Substance: VALPROATE SODIUM
     Dosage: 600 MG, UNK
     Route: 065
  8. HALOPERIDOL. [Suspect]
     Active Substance: HALOPERIDOL
     Indication: EPILEPSY
  9. RISPERIDONE. [Suspect]
     Active Substance: RISPERIDONE
     Indication: AGGRESSION
     Dosage: 4.5 MG, QD
     Route: 065
  10. CLONAZEPAM. [Suspect]
     Active Substance: CLONAZEPAM
     Indication: EPILEPSY
  11. HALOPERIDOL. [Suspect]
     Active Substance: HALOPERIDOL
     Indication: MOVEMENT DISORDER
     Dosage: 1.5 MG, QD
     Route: 065
  12. DIAZEPAM. [Suspect]
     Active Substance: DIAZEPAM
     Indication: EPILEPSY
  13. QUETIAPINE. [Suspect]
     Active Substance: QUETIAPINE
     Indication: ABNORMAL BEHAVIOUR
     Dosage: 200 MG, QD
     Route: 065
  14. MELATONIN [Concomitant]
     Active Substance: MELATONIN
     Indication: SLEEP DISORDER
     Dosage: 1.5 MG, QD
     Route: 065
  15. VALPROATE SODIUM. [Suspect]
     Active Substance: VALPROATE SODIUM
     Indication: EPILEPSY
     Dosage: 1000 MG, QD
     Route: 065
  16. CLONAZEPAM. [Suspect]
     Active Substance: CLONAZEPAM
     Indication: MOVEMENT DISORDER
     Dosage: 1 MG, QD
     Route: 065
  17. RISPERIDONE. [Suspect]
     Active Substance: RISPERIDONE
     Dosage: 3 MG, QD
     Route: 065
  18. HALOPERIDOL. [Suspect]
     Active Substance: HALOPERIDOL
     Indication: DYSKINESIA
  19. DIAZEPAM. [Suspect]
     Active Substance: DIAZEPAM
     Indication: MOVEMENT DISORDER
     Dosage: 2 MG, QD
     Route: 065

REACTIONS (23)
  - Dyskinesia [Recovered/Resolved]
  - Sedation [Unknown]
  - Sepsis [Recovered/Resolved]
  - Tardive dyskinesia [Recovered/Resolved]
  - Communication disorder [Recovered/Resolved]
  - Extrapyramidal disorder [Recovered/Resolved]
  - Therapy non-responder [Unknown]
  - Condition aggravated [Not Recovered/Not Resolved]
  - Choreoathetosis [Recovered/Resolved]
  - Emotional distress [Recovered/Resolved]
  - Insomnia [Recovered/Resolved]
  - Anxiety [Recovered/Resolved]
  - Aggression [Recovered/Resolved]
  - Restlessness [Recovered/Resolved]
  - Weight decreased [Recovered/Resolved]
  - Movement disorder [Not Recovered/Not Resolved]
  - Chills [Recovered/Resolved]
  - Tic [Unknown]
  - Intentional self-injury [Recovered/Resolved]
  - Muscle twitching [Recovered/Resolved]
  - Hyperhidrosis [Recovered/Resolved]
  - Eating disorder [Recovered/Resolved]
  - Pain [Recovered/Resolved]

NARRATIVE: CASE EVENT DATE: 201207
